FAERS Safety Report 10766505 (Version 1)
Quarter: 2015Q1

REPORT INFORMATION
  Report Type: Spontaneous
  Country: US (occurrence: US)
  Receive Date: 20150205
  Receipt Date: 20150205
  Transmission Date: 20150721
  Serious: No
  Sender: FDA-Public Use
  Company Number: US-BAUSCH-SYM-2014-15097

PATIENT
  Sex: Male

DRUGS (2)
  1. XENAZINE [Suspect]
     Active Substance: TETRABENAZINE
     Indication: TARDIVE DYSKINESIA
     Dosage: ONE TABLET AT BEDTIME
     Route: 048
     Dates: start: 20131210
  2. XENAZINE [Suspect]
     Active Substance: TETRABENAZINE
     Route: 048

REACTIONS (2)
  - Drug ineffective [Unknown]
  - Anger [Unknown]
